FAERS Safety Report 13369142 (Version 1)
Quarter: 2017Q1

REPORT INFORMATION
  Report Type: Spontaneous
  Country: BR (occurrence: BR)
  Receive Date: 20170324
  Receipt Date: 20170324
  Transmission Date: 20170429
  Serious: Yes (Other)
  Sender: FDA-Public Use
  Company Number: BR-GLAXOSMITHKLINE-BR2017GSK039215

PATIENT
  Age: 79 Year
  Sex: Male

DRUGS (4)
  1. AVAMYS [Suspect]
     Active Substance: FLUTICASONE FUROATE
     Dosage: 4 PUFF(S), BID
     Route: 045
  2. AMOXICILLIN. [Suspect]
     Active Substance: AMOXICILLIN
     Indication: PRODUCT USED FOR UNKNOWN INDICATION
     Dosage: 875 MG, UNK
  3. PREDSIM [Suspect]
     Active Substance: PREDNISOLONE
     Indication: PRODUCT USED FOR UNKNOWN INDICATION
     Dosage: UNK
  4. AVAMYS [Suspect]
     Active Substance: FLUTICASONE FUROATE
     Indication: LARYNGEAL OEDEMA
     Dosage: 4 PUFF(S), BID
     Route: 045
     Dates: start: 20170214

REACTIONS (5)
  - Laryngeal oedema [Unknown]
  - Overdose [Unknown]
  - Product outer packaging issue [Unknown]
  - Product use issue [Unknown]
  - Incorrect dose administered [Unknown]

NARRATIVE: CASE EVENT DATE: 20170220
